FAERS Safety Report 7001186-5 (Version None)
Quarter: 2010Q3

REPORT INFORMATION
  Report Type: 
  Country: None (occurrence: None)
  Receive Date: 20100920
  Receipt Date: 20090915
  Transmission Date: 20110219
  Serious: No
  Sender: FDA-Public Use
  Company Number: US-ASTRAZENECA-2007UW11477

PATIENT
  Age: 64 Year
  Sex: Female
  Weight: 63.5 kg

DRUGS (15)
  1. SEROQUEL [Suspect]
     Indication: DEPRESSION
     Dosage: 12.5 TO 25 MG
     Route: 048
     Dates: start: 20040122, end: 20060501
  2. SEROQUEL [Suspect]
     Indication: ANXIETY
     Dosage: 12.5 TO 25 MG
     Route: 048
     Dates: start: 20040122, end: 20060501
  3. SEROQUEL [Suspect]
     Route: 048
     Dates: start: 20040122, end: 20060404
  4. SEROQUEL [Suspect]
     Route: 048
     Dates: start: 20040122, end: 20060404
  5. PROZAC [Concomitant]
     Route: 048
     Dates: start: 19850101
  6. LOPRESSOR [Concomitant]
     Dosage: 100 MG TO 200 MG
     Route: 048
  7. COUMADIN [Concomitant]
     Route: 048
  8. CLONAZEPAM [Concomitant]
     Dosage: 0.125 MG TO 1.5 MG
     Route: 048
  9. AMARYL [Concomitant]
     Dosage: 2 MG TO 4 MG
     Route: 048
  10. LANOXIN [Concomitant]
     Dosage: 0.05 MG TO 0.25 MG
     Route: 048
  11. METFORMIN [Concomitant]
     Dosage: 250 MG TO 2000 MG
     Route: 048
  12. REMERON [Concomitant]
     Route: 048
  13. TRAMADOL [Concomitant]
     Route: 048
  14. ATIVAN [Concomitant]
     Route: 048
  15. HALDOL [Concomitant]
     Dates: start: 19800101

REACTIONS (12)
  - ABDOMINAL PAIN [None]
  - ARTHRALGIA [None]
  - BACK PAIN [None]
  - DEFAECATION URGENCY [None]
  - HYPERGLYCAEMIA [None]
  - INFLUENZA [None]
  - MUSCULAR WEAKNESS [None]
  - NAUSEA [None]
  - PAIN IN EXTREMITY [None]
  - PANIC ATTACK [None]
  - TYPE 2 DIABETES MELLITUS [None]
  - VOMITING [None]
